FAERS Safety Report 23902293 (Version 2)
Quarter: 2024Q2

REPORT INFORMATION
  Report Type: Report from Study
  Country: US (occurrence: US)
  Receive Date: 20240527
  Receipt Date: 20240528
  Transmission Date: 20240716
  Serious: Yes (Disabling)
  Sender: FDA-Public Use
  Company Number: US-ABBVIE-5771856

PATIENT
  Sex: Female

DRUGS (1)
  1. HUMIRA [Suspect]
     Active Substance: ADALIMUMAB
     Indication: Product used for unknown indication
     Dosage: FORM STRENGTH: 40 MG/CITRATE FREE
     Route: 058

REACTIONS (10)
  - Disability [Unknown]
  - Condition aggravated [Not Recovered/Not Resolved]
  - Grip strength decreased [Unknown]
  - Loss of personal independence in daily activities [Unknown]
  - Post procedural complication [Unknown]
  - Dental care [Unknown]
  - Arthropathy [Not Recovered/Not Resolved]
  - Dry mouth [Unknown]
  - Limb injury [Not Recovered/Not Resolved]
  - Chest injury [Not Recovered/Not Resolved]

NARRATIVE: CASE EVENT DATE: 20240101
